FAERS Safety Report 10023786 (Version 1)
Quarter: 2014Q1

REPORT INFORMATION
  Report Type: Report from Study
  Country: JP (occurrence: JP)
  Receive Date: 20140320
  Receipt Date: 20140320
  Transmission Date: 20141002
  Serious: Yes (Other)
  Sender: FDA-Public Use
  Company Number: JP-ROCHE-1362975

PATIENT
  Age: 81 Year
  Sex: Female

DRUGS (1)
  1. RANIBIZUMAB [Suspect]
     Indication: METAMORPHOPSIA
     Route: 065

REACTIONS (2)
  - Retinal haemorrhage [Unknown]
  - Retinal pigment epithelial tear [Unknown]
